FAERS Safety Report 9538936 (Version 1)
Quarter: 2013Q3

REPORT INFORMATION
  Report Type: Spontaneous
  Country: RU (occurrence: RU)
  Receive Date: 20130920
  Receipt Date: 20130920
  Transmission Date: 20140515
  Serious: Yes (Other)
  Sender: FDA-Public Use
  Company Number: RU-BAYER-2013-113387

PATIENT
  Age: 26 Year
  Sex: Female

DRUGS (1)
  1. QLAIRA [Suspect]
     Route: 048

REACTIONS (2)
  - Candida infection [Not Recovered/Not Resolved]
  - Vaginal haemorrhage [Not Recovered/Not Resolved]
